FAERS Safety Report 7927434 (Version 2)
Quarter: 2012Q4

REPORT INFORMATION
  Report Type: 
  Country: US (occurrence: US)
  Receive Date: 20110503
  Receipt Date: 20120924
  Transmission Date: 20130627
  Serious: Yes (Hospitalization)
  Sender: FDA-Public Use
  Company Number: US-US-EMD SERONO, INC.-7055630

PATIENT
  Age: 32 None
  Sex: Female

DRUGS (2)
  1. REBIF [Suspect]
     Indication: PRODUCT USED FOR UNKNOWN INDICATION
  2. REBIF [Suspect]
     Route: 058
     Dates: end: 2011

REACTIONS (3)
  - Grand mal convulsion [Recovering/Resolving]
  - Cognitive disorder [Unknown]
  - Injection site ulcer [Unknown]
